FAERS Safety Report 12329043 (Version 2)
Quarter: 2016Q2

REPORT INFORMATION
  Report Type: Spontaneous
  Country: US (occurrence: US)
  Receive Date: 20160503
  Receipt Date: 20160509
  Transmission Date: 20160815
  Serious: No
  Sender: FDA-Public Use
  Company Number: US-009507513-1604USA018557

PATIENT
  Age: 18 Year
  Sex: Female
  Weight: 60.32 kg

DRUGS (1)
  1. NEXPLANON [Suspect]
     Active Substance: ETONOGESTREL
     Indication: CONTRACEPTION
     Dosage: 1 ROD/3 YEARS
     Route: 059
     Dates: start: 20160411, end: 20160425

REACTIONS (3)
  - Implant site rash [Recovering/Resolving]
  - Implant site reaction [Recovering/Resolving]
  - Implant site warmth [Recovering/Resolving]

NARRATIVE: CASE EVENT DATE: 20160425
